FAERS Safety Report 23978513 (Version 9)
Quarter: 2025Q1

REPORT INFORMATION
  Report Type: Spontaneous
  Country: US (occurrence: US)
  Receive Date: 20240614
  Receipt Date: 20250307
  Transmission Date: 20250409
  Serious: Yes (Hospitalization, Other)
  Sender: PFIZER
  Company Number: US-PFIZER INC-202400193015

PATIENT
  Age: 86 Year
  Sex: Female

DRUGS (1)
  1. XELJANZ XR [Suspect]
     Active Substance: TOFACITINIB CITRATE
     Dates: start: 202405

REACTIONS (13)
  - Spinal disorder [Not Recovered/Not Resolved]
  - Shoulder operation [Unknown]
  - Drug ineffective [Unknown]
  - Condition aggravated [Not Recovered/Not Resolved]
  - Bradykinesia [Unknown]
  - Pain [Unknown]
  - Hyperaesthesia [Unknown]
  - Osteoarthritis [Not Recovered/Not Resolved]
  - Infection [Unknown]
  - Pharyngitis [Unknown]
  - Hypersensitivity [Unknown]
  - Illness [Not Recovered/Not Resolved]
  - Arthritis [Not Recovered/Not Resolved]

NARRATIVE: CASE EVENT DATE: 20240812
